FAERS Safety Report 4634456-6 (Version None)
Quarter: 2005Q2

REPORT INFORMATION
  Report Type: 
  Country: None (occurrence: None)
  Receive Date: 20050412
  Receipt Date: 20050329
  Transmission Date: 20051028
  Serious: Yes (Hospitalization)
  Sender: FDA-Public Use
  Company Number: 2005BI003180

PATIENT
  Age: 52 Year
  Sex: Male
  Weight: 89.8122 kg

DRUGS (1)
  1. AMEVIVE [Suspect]
     Indication: PSORIASIS
     Dosage: IM
     Route: 030
     Dates: start: 20041105, end: 20041203

REACTIONS (4)
  - CELLULITIS [None]
  - SCAR [None]
  - SKIN ULCER [None]
  - STREPTOCOCCAL INFECTION [None]
